FAERS Safety Report 10428414 (Version 1)
Quarter: 2014Q3

REPORT INFORMATION
  Report Type: Spontaneous
  Country: US (occurrence: US)
  Receive Date: 20140903
  Receipt Date: 20140903
  Transmission Date: 20150326
  Serious: Yes (Death)
  Sender: FDA-Public Use
  Company Number: US-GLAXOSMITHKLINE-A1087585A

PATIENT
  Age: 23 Year
  Sex: Male
  Weight: 75 kg

DRUGS (1)
  1. MEKINIST [Suspect]
     Active Substance: TRAMETINIB DIMETHYL SULFOXIDE
     Indication: MALIGNANT MAST CELL NEOPLASM
     Dosage: 2MG PER DAY
     Route: 048
     Dates: start: 20140514

REACTIONS (1)
  - Death [Fatal]

NARRATIVE: CASE EVENT DATE: 20140722
